FAERS Safety Report 16969756 (Version 4)
Quarter: 2019Q4

REPORT INFORMATION
  Report Type: Spontaneous
  Country: ES (occurrence: ES)
  Receive Date: 20191029
  Receipt Date: 20191113
  Transmission Date: 20200122
  Serious: Yes (Hospitalization, Other)
  Sender: FDA-Public Use
  Company Number: ES-PFIZER INC-2019465725

PATIENT
  Age: 67 Year
  Sex: Male
  Weight: 78 kg

DRUGS (6)
  1. PANTECTA [Suspect]
     Active Substance: PANTOPRAZOLE SODIUM
     Dosage: 20 MG, 1X/DAY 1-0-0
     Route: 048
     Dates: start: 20190731
  2. OLMETEC [Suspect]
     Active Substance: OLMESARTAN MEDOXOMIL
     Dosage: 20 MG, 1X/DAY 1-0-0
     Route: 048
     Dates: start: 20190731
  3. ADIRO [Suspect]
     Active Substance: ASPIRIN
     Dosage: 100 MG, 1X/DAY 0-1-0
     Route: 048
     Dates: start: 20190731
  4. CLOPIDOGREL [Suspect]
     Active Substance: CLOPIDOGREL BISULFATE
     Dosage: 75 MG, 1X/DAY 1-0-0
     Route: 048
     Dates: start: 20190731
  5. ENALAPRIL [Suspect]
     Active Substance: ENALAPRIL
     Dosage: 10 MG, 1X/DAY 1-0-0
     Route: 048
     Dates: start: 20190821
  6. ATORVASTATIN CALCIUM. [Suspect]
     Active Substance: ATORVASTATIN CALCIUM
     Indication: PROPHYLAXIS
     Dosage: 40 MG, 1X/DAY 0-0-1
     Route: 048
     Dates: start: 20190731, end: 20191013

REACTIONS (1)
  - Hepatitis toxic [Recovering/Resolving]

NARRATIVE: CASE EVENT DATE: 20191014
